APPROVED DRUG PRODUCT: FAMOTIDINE
Active Ingredient: FAMOTIDINE
Strength: 20MG
Dosage Form/Route: TABLET;ORAL
Application: A075607 | Product #001
Applicant: SANDOZ INC
Approved: May 10, 2001 | RLD: No | RS: No | Type: DISCN